FAERS Safety Report 6595980-2 (Version None)
Quarter: 2010Q1

REPORT INFORMATION
  Report Type: 
  Country: None (occurrence: None)
  Receive Date: 20100223
  Receipt Date: 20100211
  Transmission Date: 20100710
  Serious: Yes (Other)
  Sender: FDA-Public Use
  Company Number: PHEH2010US02437

PATIENT
  Sex: Female

DRUGS (2)
  1. ZOMETA [Suspect]
     Indication: HYPERCALCAEMIA OF MALIGNANCY
     Dosage: UNK
     Route: 042
     Dates: start: 20031201, end: 20070201
  2. ZOMETA [Suspect]
     Indication: BREAST CANCER

REACTIONS (6)
  - INJURY [None]
  - JAW DISORDER [None]
  - OSTEONECROSIS [None]
  - PAIN [None]
  - SURGERY [None]
  - TOOTH LOSS [None]
